FAERS Safety Report 12898992 (Version 2)
Quarter: 2016Q4

REPORT INFORMATION
  Report Type: Report from Study
  Country: JP (occurrence: JP)
  Receive Date: 20161101
  Receipt Date: 20161124
  Transmission Date: 20170207
  Serious: Yes (Hospitalization, Disabling)
  Sender: FDA-Public Use
  Company Number: JP-AMGEN-JPNCT2016152468

PATIENT
  Age: 58 Year
  Sex: Male
  Weight: 87 kg

DRUGS (25)
  1. TAKEPRON [Suspect]
     Active Substance: LANSOPRAZOLE
     Dosage: 30 MG, QD
     Route: 048
     Dates: start: 20150325
  2. JUSO [Suspect]
     Active Substance: SODIUM BICARBONATE
     Indication: CHRONIC KIDNEY DISEASE
     Dosage: 5 G, TID
     Route: 065
     Dates: start: 20160212
  3. KREMEZIN [Suspect]
     Active Substance: ACTIVATED CHARCOAL
     Indication: CHRONIC KIDNEY DISEASE
  4. DIART [Suspect]
     Active Substance: AZOSEMIDE
     Indication: OEDEMA DUE TO RENAL DISEASE
     Dosage: 60 MG, QD
     Route: 048
     Dates: start: 20160212
  5. ROCALTROL [Suspect]
     Active Substance: CALCITRIOL
     Indication: CHRONIC KIDNEY DISEASE
     Dosage: 0.5 MUG, QD
     Route: 048
     Dates: start: 20160503
  6. ROCALTROL [Suspect]
     Active Substance: CALCITRIOL
     Dosage: 0.5 MUG, QD
     Route: 048
     Dates: start: 20160603
  7. ADALAT [Suspect]
     Active Substance: NIFEDIPINE
     Dosage: 40 MG, QD
     Route: 048
     Dates: start: 20150324
  8. DARBEPOETIN ALFA [Suspect]
     Active Substance: DARBEPOETIN ALFA
     Dosage: 30 MUG, QWK
     Route: 065
  9. TAKEPRON [Suspect]
     Active Substance: LANSOPRAZOLE
     Indication: GASTRIC ULCER
     Dosage: 15 MG, QD
     Route: 048
     Dates: start: 20150325
  10. CARDENALIN [Suspect]
     Active Substance: DOXAZOSIN MESYLATE
     Indication: HYPERTENSION
     Dosage: 8 MG, UNK
     Route: 048
     Dates: start: 20150407
  11. FEBURIC [Suspect]
     Active Substance: FEBUXOSTAT
     Dosage: 20 MG, QD
     Route: 048
     Dates: start: 20151009
  12. KREMEZIN [Suspect]
     Active Substance: ACTIVATED CHARCOAL
     Indication: CHRONIC KIDNEY DISEASE
     Dosage: 2 G, TID
     Route: 048
     Dates: start: 20160311
  13. NORVASC [Suspect]
     Active Substance: AMLODIPINE BESYLATE
     Indication: HYPERTENSION
     Dosage: 10 MG, UNK
     Route: 048
     Dates: start: 20150414
  14. FEBURIC [Suspect]
     Active Substance: FEBUXOSTAT
     Indication: HYPERURICAEMIA
     Dosage: 20 MG, QD
     Route: 048
     Dates: start: 20150904
  15. MS ONSHIPPU [Suspect]
     Active Substance: CAMPHOR\CAPSICUM\METHYL SALICYLATE
     Indication: BACK PAIN
     Dosage: 1 DF, QD
     Route: 061
     Dates: start: 20160212
  16. MS ONSHIPPU [Suspect]
     Active Substance: CAMPHOR\CAPSICUM\METHYL SALICYLATE
     Indication: BACK PAIN
  17. ARTIST [Suspect]
     Active Substance: CARVEDILOL
     Indication: HYPERTENSION
     Dosage: 20 MG, UNK
     Route: 048
     Dates: start: 20150326
  18. CALTAN [Suspect]
     Active Substance: CALCIUM CARBONATE
     Indication: CHRONIC KIDNEY DISEASE
     Dosage: 500 MG, TID
     Route: 048
     Dates: start: 20160909
  19. SINGULAIR [Suspect]
     Active Substance: MONTELUKAST SODIUM
     Indication: RHINITIS ALLERGIC
     Dosage: 10 MG, QD
     Route: 048
     Dates: start: 20161106, end: 20161109
  20. DARBEPOETIN ALFA [Suspect]
     Active Substance: DARBEPOETIN ALFA
     Indication: PRODUCT USED FOR UNKNOWN INDICATION
     Dosage: 90 MUG, Q2WK
     Route: 065
     Dates: start: 20150612
  21. WYTENS [Suspect]
     Active Substance: GUANABENZ ACETATE
     Indication: HYPERTENSION
     Dosage: 2 MG, BID
     Route: 048
     Dates: start: 20160701
  22. NU-LOTAN [Suspect]
     Active Substance: LOSARTAN POTASSIUM
     Indication: HYPERTENSION
     Dosage: 12.5 MG, QD
     Route: 048
     Dates: start: 20150429
  23. DIART [Suspect]
     Active Substance: AZOSEMIDE
     Indication: OEDEMA DUE TO RENAL DISEASE
     Dosage: 60 MG, QD
     Route: 048
     Dates: start: 20151106
  24. ADALAT [Suspect]
     Active Substance: NIFEDIPINE
     Indication: HYPERTENSION
     Dosage: 20 MG, BID
     Route: 048
     Dates: start: 20150324
  25. LASIX [Suspect]
     Active Substance: FUROSEMIDE
     Indication: CHRONIC KIDNEY DISEASE
     Dosage: 40 MG, QD
     Route: 048
     Dates: start: 20161021

REACTIONS (3)
  - Haemodialysis [Recovering/Resolving]
  - End stage renal disease [Recovering/Resolving]
  - Cardiac failure congestive [Recovering/Resolving]

NARRATIVE: CASE EVENT DATE: 20161024
